FAERS Safety Report 18372319 (Version 3)
Quarter: 2024Q3

REPORT INFORMATION
  Report Type: Report from Study
  Country: BR (occurrence: BR)
  Receive Date: 20201012
  Receipt Date: 20240703
  Transmission Date: 20241016
  Serious: Yes (Other)
  Sender: NOVARTIS
  Company Number: BR-NOVARTISPH-NVSC2020BR274093

PATIENT
  Age: 56 Year
  Sex: Female

DRUGS (6)
  1. COSENTYX [Suspect]
     Active Substance: SECUKINUMAB
     Indication: Psoriasis
     Dosage: 300 MG (INJECTION)
     Route: 065
     Dates: start: 20190122
  2. COSENTYX [Suspect]
     Active Substance: SECUKINUMAB
     Indication: Psoriatic arthropathy
     Dosage: UNK (INJECTION)
     Route: 065
     Dates: start: 202008
  3. COSENTYX [Suspect]
     Active Substance: SECUKINUMAB
     Dosage: UNK (INJECTION)
     Route: 065
     Dates: start: 20200920
  4. COSENTYX [Suspect]
     Active Substance: SECUKINUMAB
     Dosage: 300 MG (INJECTION)
     Route: 065
  5. COSENTYX [Suspect]
     Active Substance: SECUKINUMAB
     Dosage: UNK (INJECTION)
     Route: 065
     Dates: start: 20220612
  6. COSENTYX [Suspect]
     Active Substance: SECUKINUMAB
     Dosage: UNK, UNKNOWN (INJECTION)
     Route: 065

REACTIONS (5)
  - Peripheral swelling [Recovering/Resolving]
  - Emotional disorder [Unknown]
  - Drug ineffective [Unknown]
  - Psoriasis [Unknown]
  - Skin lesion [Not Recovered/Not Resolved]

NARRATIVE: CASE EVENT DATE: 20200801
